FAERS Safety Report 7680399-3 (Version None)
Quarter: 2011Q3

REPORT INFORMATION
  Report Type: 
  Country: None (occurrence: None)
  Receive Date: 20110812
  Receipt Date: 20110808
  Transmission Date: 20111222
  Serious: Yes (Hospitalization, Other)
  Sender: FDA-Public Use
  Company Number: US-BAYER-2011-025751

PATIENT
  Age: 22 Year
  Sex: Female
  Weight: 79 kg

DRUGS (2)
  1. SYNTHROID [Concomitant]
     Dosage: UNK
     Dates: start: 20030101
  2. YASMIN [Suspect]
     Indication: CONTRACEPTION
     Dosage: UNK
     Dates: start: 20080101, end: 20100101

REACTIONS (5)
  - CEREBRAL THROMBOSIS [None]
  - DEEP VEIN THROMBOSIS [None]
  - INJURY [None]
  - BRAIN INJURY [None]
  - PAIN [None]
